FAERS Safety Report 11695135 (Version 1)
Quarter: 2015Q4

REPORT INFORMATION
  Report Type: Other
  Country: FR (occurrence: FR)
  Receive Date: 20151103
  Receipt Date: 20151103
  Transmission Date: 20160304
  Serious: Yes (Hospitalization)
  Sender: FDA-Public Use
  Company Number: FR-TAKEDA-2015TUS015168

PATIENT
  Age: 31 Year
  Sex: Female

DRUGS (1)
  1. ENTYVIO [Suspect]
     Active Substance: VEDOLIZUMAB
     Indication: CROHN^S DISEASE
     Dosage: 300 MG, UNK
     Route: 042
     Dates: start: 20150803

REACTIONS (4)
  - Asthenia [Recovering/Resolving]
  - Rash pruritic [Recovering/Resolving]
  - Myalgia [Recovering/Resolving]
  - Rosacea [Recovering/Resolving]

NARRATIVE: CASE EVENT DATE: 201508
